FAERS Safety Report 17942575 (Version 1)
Quarter: 2020Q2

REPORT INFORMATION
  Report Type: Spontaneous
  Country: PT (occurrence: PT)
  Receive Date: 20200624
  Receipt Date: 20200624
  Transmission Date: 20200714
  Serious: Yes (Other)
  Sender: FDA-Public Use
  Company Number: PT-BAXTER-2020BAX012985

PATIENT
  Age: 39 Year
  Sex: Female

DRUGS (6)
  1. ENDOXAN PO PARA SOLUCAO INJECTAVEL 1000 MG [Suspect]
     Active Substance: CYCLOPHOSPHAMIDE
     Indication: BREAST CANCER STAGE I
     Dosage: ENDOXAN
     Route: 065
  2. ENDOXAN PO PARA SOLUCAO INJECTAVEL 1000 MG [Suspect]
     Active Substance: CYCLOPHOSPHAMIDE
     Indication: INTRADUCTAL PROLIFERATIVE BREAST LESION
     Dosage: UNSPECIFIED, FOR FOUR CYCLES
     Route: 042
  3. DOXIL [Suspect]
     Active Substance: DOXORUBICIN HYDROCHLORIDE
     Indication: BREAST CANCER STAGE I
     Route: 065
  4. ADRIAMYCIN [Suspect]
     Active Substance: DOXORUBICIN HYDROCHLORIDE
     Indication: INTRADUCTAL PROLIFERATIVE BREAST LESION
     Dosage: GIVEN EVERY FOUR WEEKS
     Route: 042
  5. PARAPLATIN [Suspect]
     Active Substance: CARBOPLATIN
     Indication: INTRADUCTAL PROLIFERATIVE BREAST LESION
     Dosage: FOR SIX CYCLES
     Route: 065
  6. TAXOTERE [Suspect]
     Active Substance: DOCETAXEL
     Indication: INTRADUCTAL PROLIFERATIVE BREAST LESION
     Dosage: FOR SIX CYCLES
     Route: 042

REACTIONS (8)
  - Hypertrophy [Recovered/Resolved]
  - Blindness [Recovered/Resolved]
  - Retinal deposits [Recovered/Resolved]
  - Retinal toxicity [Recovered/Resolved]
  - Retinal drusen [Recovered/Resolved]
  - Idiosyncratic drug reaction [Not Recovered/Not Resolved]
  - Maculopathy [Recovered/Resolved]
  - Visual acuity reduced [Recovered/Resolved]
